FAERS Safety Report 13721277 (Version 1)
Quarter: 2017Q3

REPORT INFORMATION
  Report Type: Spontaneous
  Country: US (occurrence: US)
  Receive Date: 20170705
  Receipt Date: 20170705
  Transmission Date: 20171127
  Serious: Yes (Life-Threatening)
  Sender: FDA-Public Use
  Company Number: None

PATIENT
  Age: 67 Year
  Sex: Female
  Weight: 108 kg

DRUGS (4)
  1. ARMOUR THYROID [Concomitant]
     Active Substance: THYROID, PORCINE
  2. INVOKANA [Suspect]
     Active Substance: CANAGLIFLOZIN
     Indication: TYPE 2 DIABETES MELLITUS
     Route: 048
     Dates: start: 20160801, end: 20161028
  3. PRANDIN [Concomitant]
     Active Substance: REPAGLINIDE
  4. EXFORGE ZETIA [Concomitant]

REACTIONS (2)
  - Rash [None]
  - Pharyngeal oedema [None]

NARRATIVE: CASE EVENT DATE: 20161028
